FAERS Safety Report 16069266 (Version 2)
Quarter: 2019Q1

REPORT INFORMATION
  Report Type: Report from Study
  Country: HU (occurrence: HU)
  Receive Date: 20190313
  Receipt Date: 20190320
  Transmission Date: 20190418
  Serious: Yes (Other)
  Sender: FDA-Public Use
  Company Number: PHHY2018HU131921

PATIENT
  Age: 78 Year
  Sex: Male
  Weight: 75 kg

DRUGS (5)
  1. MEKINIST [Suspect]
     Active Substance: TRAMETINIB DIMETHYL SULFOXIDE
     Indication: METASTATIC MALIGNANT MELANOMA
     Dosage: 2 MG, QD
     Route: 048
     Dates: start: 20180224
  2. MEKINIST [Suspect]
     Active Substance: TRAMETINIB DIMETHYL SULFOXIDE
     Dosage: 2 MG, QD
     Route: 048
     Dates: end: 20181128
  3. INFLUENZA [Suspect]
     Active Substance: INFLUENZA VIRUS VACCINE
     Indication: PRODUCT USED FOR UNKNOWN INDICATION
     Route: 065
  4. TAFINLAR [Suspect]
     Active Substance: DABRAFENIB MESYLATE
     Indication: METASTATIC MALIGNANT MELANOMA
     Dosage: 150 MG, BID
     Route: 048
     Dates: start: 20180224
  5. TAFINLAR [Suspect]
     Active Substance: DABRAFENIB MESYLATE
     Dosage: 150 MG, BID
     Route: 048
     Dates: end: 20181128

REACTIONS (24)
  - Metastases to central nervous system [Not Recovered/Not Resolved]
  - Pneumonia [Unknown]
  - Mitral valve incompetence [Unknown]
  - Hyperuricaemia [Unknown]
  - Lymphadenopathy [Not Recovered/Not Resolved]
  - Ejection fraction decreased [Recovering/Resolving]
  - Diastolic dysfunction [Recovering/Resolving]
  - Tricuspid valve calcification [Unknown]
  - Skin discolouration [Not Recovered/Not Resolved]
  - Asthma [Unknown]
  - Hypertension [Unknown]
  - Metastatic malignant melanoma [Not Recovered/Not Resolved]
  - Malignant neoplasm progression [Not Recovered/Not Resolved]
  - Skin mass [Not Recovered/Not Resolved]
  - Blood alkaline phosphatase increased [Unknown]
  - Arthritis [Unknown]
  - Hyperkeratosis [Unknown]
  - Bone neoplasm [Not Recovered/Not Resolved]
  - Gamma-glutamyltransferase increased [Unknown]
  - Rhinitis allergic [Unknown]
  - Systolic dysfunction [Recovering/Resolving]
  - Tricuspid valve incompetence [Unknown]
  - Lipids increased [Unknown]
  - Nasopharyngitis [Unknown]

NARRATIVE: CASE EVENT DATE: 2018
